FAERS Safety Report 4302311-7 (Version None)
Quarter: 2004Q1

REPORT INFORMATION
  Report Type: 
  Country: None (occurrence: None)
  Receive Date: 20040223
  Receipt Date: 20040209
  Transmission Date: 20041129
  Serious: Yes (Death)
  Sender: FDA-Public Use
  Company Number: WAES 0402NOR00011

PATIENT
  Age: 87 Year
  Sex: Female

DRUGS (1)
  1. VIOXX [Suspect]
     Route: 048
     Dates: start: 20040117

REACTIONS (3)
  - DEATH [None]
  - SUDDEN DEATH [None]
  - VOMITING [None]
